FAERS Safety Report 5941824-9 (Version None)
Quarter: 2008Q4

REPORT INFORMATION
  Report Type: 
  Country: None (occurrence: None)
  Receive Date: 20081105
  Receipt Date: 20081103
  Transmission Date: 20090506
  Serious: Yes (Other)
  Sender: FDA-Public Use
  Company Number: US-BRISTOL-MYERS SQUIBB COMPANY-14393730

PATIENT
  Sex: Female

DRUGS (3)
  1. REYATAZ [Suspect]
     Indication: HIV INFECTION
     Dosage: INCREASED TO 400 MG
  2. RITONAVIR [Suspect]
     Indication: HIV INFECTION
  3. TRUVADA [Suspect]
     Indication: HIV INFECTION

REACTIONS (4)
  - CD4 LYMPHOCYTES DECREASED [None]
  - GASTROOESOPHAGEAL REFLUX DISEASE [None]
  - NEPHROLITHIASIS [None]
  - VIRAL LOAD INCREASED [None]
